FAERS Safety Report 12747162 (Version 1)
Quarter: 2016Q3

REPORT INFORMATION
  Report Type: Spontaneous
  Country: TN (occurrence: TN)
  Receive Date: 20160915
  Receipt Date: 20160915
  Transmission Date: 20161109
  Serious: Yes (Death, Other)
  Sender: FDA-Public Use
  Company Number: TN-MYLANLABS-2016M1039316

PATIENT

DRUGS (10)
  1. BLEOMYCIN [Suspect]
     Active Substance: BLEOMYCIN SULFATE
     Indication: AUTOIMMUNE HAEMOLYTIC ANAEMIA
     Dosage: 15 MG; TOTAL OF FOUR CYCLES
     Route: 065
  2. DACARBAZINE. [Suspect]
     Active Substance: DACARBAZINE
     Indication: HODGKIN^S DISEASE
     Dosage: 375 MG/M2; TOTAL OF FOUR CYCLES
     Route: 065
  3. DACARBAZINE. [Suspect]
     Active Substance: DACARBAZINE
     Indication: AUTOIMMUNE HAEMOLYTIC ANAEMIA
     Dosage: 375 MG/M2; TOTAL OF FOUR CYCLES
     Route: 065
  4. DOXORUBICIN [Suspect]
     Active Substance: DOXORUBICIN
     Indication: AUTOIMMUNE HAEMOLYTIC ANAEMIA
     Dosage: 25MG/ M2; TOTAL OF FOUR CYCLES
     Route: 065
  5. PREDNISONE. [Concomitant]
     Active Substance: PREDNISONE
     Indication: HODGKIN^S DISEASE
     Dosage: 1MG/KG BODY WEIGHT
     Route: 065
  6. DOXORUBICIN [Suspect]
     Active Substance: DOXORUBICIN
     Indication: HODGKIN^S DISEASE
     Dosage: 25MG/ M2; TOTAL OF FOUR CYCLES
     Route: 065
  7. BLEOMYCIN [Suspect]
     Active Substance: BLEOMYCIN SULFATE
     Indication: HODGKIN^S DISEASE
     Dosage: 15 MG; TOTAL OF FOUR CYCLES
     Route: 065
  8. VINBLASTINE [Suspect]
     Active Substance: VINBLASTINE
     Indication: HODGKIN^S DISEASE
     Dosage: 10 MG; TOTAL OF FOUR CYCLES
     Route: 065
  9. PREDNISONE. [Concomitant]
     Active Substance: PREDNISONE
     Indication: AUTOIMMUNE HAEMOLYTIC ANAEMIA
     Dosage: 1MG/KG BODY WEIGHT
     Route: 065
  10. VINBLASTINE [Suspect]
     Active Substance: VINBLASTINE
     Indication: AUTOIMMUNE HAEMOLYTIC ANAEMIA
     Dosage: 10 MG; TOTAL OF FOUR CYCLES
     Route: 065

REACTIONS (1)
  - Sepsis [Fatal]
